FAERS Safety Report 4724476-5 (Version None)
Quarter: 2005Q3

REPORT INFORMATION
  Report Type: 
  Country: None (occurrence: None)
  Receive Date: 20050721
  Receipt Date: 20050715
  Transmission Date: 20060218
  Serious: Yes (Hospitalization)
  Sender: FDA-Public Use
  Company Number: 200512184GDS

PATIENT
  Age: 75 Year
  Sex: Female

DRUGS (7)
  1. CIPROFLOXACIN [Suspect]
     Indication: URINARY TRACT INFECTION
     Dosage: 1000 MG, TOTAL DAILY, ORAL
     Route: 048
     Dates: start: 20050628, end: 20050630
  2. CARTEOL [Concomitant]
  3. XALATAN [Concomitant]
  4. PRITORPLUS [Concomitant]
  5. NORVASC [Concomitant]
  6. BENEXOL [Concomitant]
  7. FOLINA [Concomitant]

REACTIONS (4)
  - APHTHOUS STOMATITIS [None]
  - BLISTER [None]
  - DERMATITIS BULLOUS [None]
  - ERYTHEMA [None]
